FAERS Safety Report 23733544 (Version 2)
Quarter: 2024Q2

REPORT INFORMATION
  Report Type: Spontaneous
  Country: US (occurrence: US)
  Receive Date: 20240411
  Receipt Date: 20240418
  Transmission Date: 20240716
  Serious: No
  Sender: FDA-Public Use
  Company Number: US-JNJFOC-20240348298

PATIENT
  Age: 3 Year
  Weight: 13.62 kg

DRUGS (1)
  1. PEPCID COMPLETE [Suspect]
     Active Substance: CALCIUM CARBONATE\FAMOTIDINE\MAGNESIUM HYDROXIDE
     Indication: Accidental exposure to product by child
     Route: 065
     Dates: start: 20240313

REACTIONS (2)
  - Accidental exposure to product by child [Unknown]
  - Failure of child resistant product closure [Unknown]

NARRATIVE: CASE EVENT DATE: 20240313
